FAERS Safety Report 7321106-3 (Version None)
Quarter: 2011Q1

REPORT INFORMATION
  Report Type: 
  Country: None (occurrence: None)
  Receive Date: 20110228
  Receipt Date: 20110201
  Transmission Date: 20110831
  Serious: No
  Sender: FDA-Public Use
  Company Number: US-B.I. PHARMACEUTICALS,INC./RIDGEFIELD-2011-BP-03169BP

PATIENT
  Sex: Female

DRUGS (8)
  1. SPIRIVA [Suspect]
     Indication: CHRONIC OBSTRUCTIVE PULMONARY DISEASE
     Dosage: 18 MCG
     Route: 055
     Dates: start: 20091001
  2. XANAX [Concomitant]
     Indication: PANIC ATTACK
  3. ALTACE [Concomitant]
     Indication: HYPERTENSION
  4. METFORMIN [Concomitant]
     Indication: DIABETES MELLITUS
  5. PAXIL [Concomitant]
     Indication: PANIC ATTACK
  6. LEVAQUIN [Concomitant]
     Indication: HYPOTHYROIDISM
  7. TRILIPIX [Concomitant]
     Indication: BLOOD CHOLESTEROL INCREASED
  8. ADVAIR DISKUS 100/50 [Concomitant]
     Indication: ASTHMA

REACTIONS (2)
  - MENISCUS LESION [None]
  - SKIN DISCOLOURATION [None]
